FAERS Safety Report 8790898 (Version 3)
Quarter: 2013Q1

REPORT INFORMATION
  Report Type: Spontaneous
  Country: US (occurrence: None)
  Receive Date: 20120906
  Receipt Date: 20121116
  Transmission Date: 20140127
  Serious: Yes (Hospitalization)
  Sender: FDA-Public Use
  Company Number: JPI-P-024616

PATIENT
  Age: 52 Year
  Sex: Female

DRUGS (17)
  1. XYREM (500 MILLIGRAM/MILLILITERS, SOLUTION) (SODIUM OXYBATE) [Suspect]
     Indication: CATAPLEXY
     Dosage: (2.25 GM, 2 IN 1 D)
     Route: 048
     Dates: start: 20060626
  2. ALBUTEROL [Concomitant]
  3. ALPHA LIPOIC ACID [Concomitant]
  4. ALPRAZOLAM (TABLETS) [Concomitant]
  5. CARBIDOPA/LEVODOPA [Concomitant]
  6. CELECOXIB (CAPSULES) [Concomitant]
  7. FLUTICASONE PROPIONATE (INHALANT) [Concomitant]
  8. HYDROXYCHLOROQUINE (TABLETS) [Concomitant]
  9. LEVALBUTEROL HYDROCHLORIDE (INHALANT) [Concomitant]
  10. LEVOTHYROXINE (TABLETS) [Concomitant]
  11. MESALAMINE [Concomitant]
  12. METHYLPHENIDATE HYDROCHLORIDE (TABLETS) [Concomitant]
  13. MODAFINIL (TABLETS) [Concomitant]
  14. PREDNISONE (TABLETS) [Concomitant]
  15. RABEPRAZOLE SODIUM (TABLETS) [Concomitant]
  16. ZILEUTON [Concomitant]
  17. FLUTICASONE PROPIONATE W/SALMETEROL [Concomitant]

REACTIONS (5)
  - Colitis ulcerative [None]
  - Cartilage injury [None]
  - Intervertebral disc protrusion [None]
  - Nerve compression [None]
  - Tinnitus [None]
